FAERS Safety Report 5008501-2 (Version None)
Quarter: 2006Q2

REPORT INFORMATION
  Report Type: 
  Country: None (occurrence: None)
  Receive Date: 20060522
  Receipt Date: 20060522
  Transmission Date: 20061013
  Serious: Yes (Life-Threatening, Hospitalization)
  Sender: FDA-Public Use
  Company Number: None

PATIENT
  Sex: Male
  Weight: 85.2762 kg

DRUGS (9)
  1. AVASTIN [Suspect]
     Indication: HEPATIC NEOPLASM MALIGNANT
     Dosage: 5 MG/KG IV Q2 WEEKS
     Dates: start: 20041018, end: 20060501
  2. LIPITOR [Concomitant]
  3. AVANDIA [Concomitant]
  4. ZOFRAN [Concomitant]
  5. ATIVAN [Concomitant]
  6. METFORMIN [Concomitant]
  7. LASIX [Concomitant]
  8. AMITRIPTYLINE HCL [Concomitant]
  9. FENTANYL TRANSDERMAL SYSTEM [Concomitant]

REACTIONS (19)
  - ABDOMINAL DISTENSION [None]
  - ATRIAL HYPERTROPHY [None]
  - BRAIN NATRIURETIC PEPTIDE INCREASED [None]
  - CARDIAC FAILURE CONGESTIVE [None]
  - CARDIOMYOPATHY [None]
  - CORONARY ARTERY DISEASE [None]
  - CORONARY ARTERY STENOSIS [None]
  - DRUG TOXICITY [None]
  - FATIGUE [None]
  - HYPOTENSION [None]
  - MALAISE [None]
  - MYOCARDIAL ISCHAEMIA [None]
  - NEUROPATHY [None]
  - NO THERAPEUTIC RESPONSE [None]
  - PLEURAL EFFUSION [None]
  - TREATMENT NONCOMPLIANCE [None]
  - URINE OUTPUT DECREASED [None]
  - VENTRICULAR DYSFUNCTION [None]
  - VENTRICULAR EXTRASYSTOLES [None]
